FAERS Safety Report 18384706 (Version 1)
Quarter: 2020Q4

REPORT INFORMATION
  Report Type: Spontaneous
  Country: US (occurrence: US)
  Receive Date: 20201015
  Receipt Date: 20201015
  Transmission Date: 20210114
  Serious: No
  Sender: FDA-Public Use
  Company Number: US-GLAXOSMITHKLINE-US2020199131

PATIENT
  Sex: Female

DRUGS (1)
  1. BENLYSTA [Suspect]
     Active Substance: BELIMUMAB
     Indication: SJOGREN^S SYNDROME
     Dosage: UNK
     Dates: start: 20200918

REACTIONS (6)
  - Dry mouth [Not Recovered/Not Resolved]
  - Off label use [Unknown]
  - Oral discomfort [Not Recovered/Not Resolved]
  - Condition aggravated [Unknown]
  - Gingival bleeding [Not Recovered/Not Resolved]
  - Erythema [Not Recovered/Not Resolved]
